FAERS Safety Report 16782883 (Version 1)
Quarter: 2019Q3

REPORT INFORMATION
  Report Type: Spontaneous
  Country: US (occurrence: US)
  Receive Date: 20190906
  Receipt Date: 20190906
  Transmission Date: 20191005
  Serious: No
  Sender: FDA-Public Use
  Company Number: US-BRISTOL-MYERS SQUIBB COMPANY-BMS-2019-087534

PATIENT
  Weight: 92.6 kg

DRUGS (1)
  1. NIVOLUMAB [Suspect]
     Active Substance: NIVOLUMAB
     Indication: RENAL CELL CARCINOMA
     Dosage: 3 MG PER KG
     Route: 065

REACTIONS (4)
  - Chest discomfort [Unknown]
  - Back pain [Unknown]
  - Feeling hot [Unknown]
  - Flushing [Unknown]
